FAERS Safety Report 14224565 (Version 8)
Quarter: 2018Q2

REPORT INFORMATION
  Report Type: Spontaneous
  Country: CA (occurrence: CA)
  Receive Date: 20171127
  Receipt Date: 20180620
  Transmission Date: 20180711
  Serious: Yes (Hospitalization, Other)
  Sender: FDA-Public Use
  Company Number: CA-ROCHE-2012603

PATIENT
  Age: 61 Year
  Sex: Male

DRUGS (2)
  1. ACTEMRA [Suspect]
     Active Substance: TOCILIZUMAB
     Indication: RHEUMATOID ARTHRITIS
     Route: 042
     Dates: start: 20170510
  2. ACTEMRA [Suspect]
     Active Substance: TOCILIZUMAB
     Dosage: INFUSION #6
     Route: 042
     Dates: start: 20171106

REACTIONS (14)
  - Speech disorder [Unknown]
  - Cardiac infection [Unknown]
  - Balance disorder [Unknown]
  - Nausea [Unknown]
  - Asthenia [Unknown]
  - Abdominal pain [Not Recovered/Not Resolved]
  - Poisoning [Unknown]
  - Sensory loss [Unknown]
  - Gastrointestinal motility disorder [Unknown]
  - Abdominal mass [Unknown]
  - Spleen disorder [Unknown]
  - Dyspepsia [Unknown]
  - Urinary retention [Unknown]
  - Cerebrovascular accident [Unknown]

NARRATIVE: CASE EVENT DATE: 2018
